FAERS Safety Report 10177664 (Version 2)
Quarter: 2014Q2

REPORT INFORMATION
  Report Type: Spontaneous
  Country: FR (occurrence: FR)
  Receive Date: 20140516
  Receipt Date: 20140516
  Transmission Date: 20141212
  Serious: Yes (Disabling)
  Sender: FDA-Public Use
  Company Number: FR-ABBVIE-14P-056-1227986-00

PATIENT
  Sex: Female
  Weight: 56.7 kg

DRUGS (7)
  1. HUMIRA [Suspect]
     Indication: GASTROINTESTINAL DISORDER
     Dates: start: 20131209
  2. HUMIRA [Suspect]
     Indication: CROHN^S DISEASE
  3. HUMIRA [Suspect]
     Dates: start: 201401
  4. CORTANCYL [Concomitant]
     Indication: CROHN^S DISEASE
     Route: 048
     Dates: start: 20140207
  5. INEXIUM [Concomitant]
     Indication: PRODUCT USED FOR UNKNOWN INDICATION
     Route: 048
     Dates: start: 20140207
  6. OROCAL VITAMINE D3 [Concomitant]
     Indication: PRODUCT USED FOR UNKNOWN INDICATION
     Route: 048
     Dates: start: 20140212
  7. AERIUS [Concomitant]
     Indication: PRODUCT USED FOR UNKNOWN INDICATION
     Dosage: OLD TREATMENT
     Route: 048

REACTIONS (5)
  - Eye pruritus [Not Recovered/Not Resolved]
  - Lacrimation increased [Not Recovered/Not Resolved]
  - Tinnitus [Not Recovered/Not Resolved]
  - Neck pain [Not Recovered/Not Resolved]
  - Adverse event [Unknown]
